FAERS Safety Report 16742229 (Version 1)
Quarter: 2019Q3

REPORT INFORMATION
  Report Type: Spontaneous
  Country: US (occurrence: US)
  Receive Date: 20190826
  Receipt Date: 20190826
  Transmission Date: 20191005
  Serious: Yes (Hospitalization, Disabling)
  Sender: FDA-Public Use
  Company Number: US-JNJFOC-20190828565

PATIENT
  Sex: Male
  Weight: 90.8 kg

DRUGS (1)
  1. INVOKANA [Suspect]
     Active Substance: CANAGLIFLOZIN
     Indication: TYPE 2 DIABETES MELLITUS
     Route: 048

REACTIONS (4)
  - Gangrene [Unknown]
  - Post procedural complication [Unknown]
  - Limb amputation [Unknown]
  - Osteomyelitis acute [Unknown]

NARRATIVE: CASE EVENT DATE: 2017
